FAERS Safety Report 5127186-8 (Version None)
Quarter: 2006Q4

REPORT INFORMATION
  Report Type: 
  Country: None (occurrence: None)
  Receive Date: 20061010
  Receipt Date: 20060913
  Transmission Date: 20070319
  Serious: Yes (Other)
  Sender: FDA-Public Use
  Company Number: 2006SP001923

PATIENT
  Age: 30 Year
  Sex: Female
  Weight: 81.1939 kg

DRUGS (2)
  1. PEG-INTRON [Suspect]
     Indication: HEPATITIS C
     Dosage: SC
     Route: 058
     Dates: start: 20060816
  2. RIBASPHERE [Suspect]
     Indication: HEPATITIS C
     Dosage: PO
     Route: 048
     Dates: start: 20060816

REACTIONS (36)
  - AGEUSIA [None]
  - ANAEMIA [None]
  - ANOSMIA [None]
  - ANXIETY [None]
  - ASTHENIA [None]
  - ASTIGMATISM [None]
  - BLOOD IRON DECREASED [None]
  - BLOOD POTASSIUM DECREASED [None]
  - BLOOD PRESSURE DECREASED [None]
  - CONDITION AGGRAVATED [None]
  - DEHYDRATION [None]
  - DELUSION [None]
  - DEPRESSION [None]
  - DISORIENTATION [None]
  - DIZZINESS [None]
  - DYSGEUSIA [None]
  - DYSPNOEA [None]
  - FATIGUE [None]
  - HALLUCINATION [None]
  - HYPOTENSION [None]
  - INJECTION SITE ERYTHEMA [None]
  - INJECTION SITE PAIN [None]
  - INJECTION SITE PRURITUS [None]
  - INJECTION SITE RASH [None]
  - INTESTINAL MASS [None]
  - LOSS OF CONSCIOUSNESS [None]
  - NAUSEA [None]
  - NIGHTMARE [None]
  - OESOPHAGEAL MASS [None]
  - POST PROCEDURAL COMPLICATION [None]
  - PRURITUS GENERALISED [None]
  - PYREXIA [None]
  - STOMATITIS [None]
  - VISION BLURRED [None]
  - VISUAL DISTURBANCE [None]
  - VOMITING [None]
